FAERS Safety Report 6703589-2 (Version None)
Quarter: 2010Q2

REPORT INFORMATION
  Report Type: 
  Country: None (occurrence: None)
  Receive Date: 20100430
  Receipt Date: 20100426
  Transmission Date: 20101027
  Serious: Yes (Other)
  Sender: FDA-Public Use
  Company Number: PHHY2010BR06601

PATIENT
  Sex: Female

DRUGS (5)
  1. EXFORGE [Suspect]
     Indication: BLOOD PRESSURE
     Dosage: 1 TABLET (160/5 MG) DAILY
     Route: 048
     Dates: start: 20091217, end: 20100205
  2. OLCADIL [Suspect]
     Dosage: 2 MG
     Route: 048
  3. OLCADIL [Suspect]
     Dosage: 0.5 TABLET DAILY
  4. SYNTHROID [Concomitant]
     Indication: HYPOTHYROIDISM
     Dosage: 1 TABLET (88 MCG) DAILY
     Route: 048
  5. PROPAFENONE HCL [Concomitant]
     Indication: ARRHYTHMIA
     Dosage: 300 MG, UNK
     Route: 048
     Dates: start: 20090801

REACTIONS (15)
  - ABDOMINAL PAIN [None]
  - ASTHENIA [None]
  - BALANCE DISORDER [None]
  - BLOOD PRESSURE DECREASED [None]
  - BURNING SENSATION [None]
  - ERUCTATION [None]
  - EYE DISCHARGE [None]
  - FATIGUE [None]
  - HEART RATE DECREASED [None]
  - HYPOAESTHESIA [None]
  - INSOMNIA [None]
  - MYALGIA [None]
  - OROPHARYNGEAL PAIN [None]
  - SOMNOLENCE [None]
  - SWELLING [None]
